FAERS Safety Report 21801151 (Version 1)
Quarter: 2022Q4

REPORT INFORMATION
  Report Type: Report from Study
  Country: US (occurrence: US)
  Receive Date: 20221230
  Receipt Date: 20221230
  Transmission Date: 20230112
  Serious: No
  Sender: FDA-Public Use
  Company Number: US-ABBVIE-4221067

PATIENT
  Sex: Female

DRUGS (3)
  1. HUMIRA [Suspect]
     Active Substance: ADALIMUMAB
     Indication: Rheumatoid arthritis
     Dosage: CITRATE FREE, FORM STRENGTH: 40 MILLIGRAM
     Route: 058
  2. COVID VACCINE [Concomitant]
     Indication: COVID-19 immunisation
     Dosage: COVID VACCINE, FREQUENCY: ONE IN ONCE
     Route: 030
  3. COVID VACCINE [Concomitant]
     Indication: COVID-19 immunisation
     Dosage: BOOSTER VACCINE, FREQUENCY: ONE IN ONCE
     Route: 030

REACTIONS (1)
  - COVID-19 [Recovered/Resolved]
